FAERS Safety Report 18205160 (Version 1)
Quarter: 2020Q3

REPORT INFORMATION
  Report Type: Spontaneous
  Country: GB (occurrence: GB)
  Receive Date: 20200828
  Receipt Date: 20200828
  Transmission Date: 20201103
  Serious: Yes (Other)
  Sender: FDA-Public Use
  Company Number: GB-PFIZER INC-2020329211

PATIENT
  Age: 60 Year
  Sex: Female
  Weight: 56 kg

DRUGS (14)
  1. CLOTRIMAZOLE. [Concomitant]
     Active Substance: CLOTRIMAZOLE
     Dosage: APPLY TO THE AFFECTED AREA(S) TWO TO THREE TIME...
     Dates: start: 20200728
  2. SOFRADEX [DEXAMETHASONE SODIUM METASULFOBENZOATE;FRAMYCETIN SULFATE;GR [Concomitant]
     Dosage: USE AS DIRECTED
     Dates: start: 20200722, end: 20200723
  3. SOFRADEX [DEXAMETHASONE SODIUM METASULFOBENZOATE;FRAMYCETIN SULFATE;GR [Concomitant]
     Dosage: UNK
  4. CIPROFLOXACIN. [Concomitant]
     Active Substance: CIPROFLOXACIN
     Dosage: 3 DF, 1X/DAY, RIGHT EAR
     Dates: start: 20200728
  5. OTOMIZE [Concomitant]
     Active Substance: DEXAMETHASONE\NEOMYCIN SULFATE
     Indication: EAR DISORDER
     Dosage: SPRAY ONE PUFF INTO THE AFFECTED EAR(S), THREE ...
     Dates: start: 20200706, end: 20200713
  6. OMEPRAZOLE. [Concomitant]
     Active Substance: OMEPRAZOLE
     Dosage: 1 DF, 1X/DAY, TAKE ALONGSIDE ANTI?INFLAMMATOR...
     Dates: start: 20200713
  7. PREGABALIN. [Suspect]
     Active Substance: PREGABALIN
     Dosage: 25 MG, 1X/DAY, AT NIGHT AND AFTER 5 DAYS TO INCREA...
     Dates: start: 20200518
  8. NYSTAN [Concomitant]
     Active Substance: NYSTATIN
     Dosage: 4 DF, 1X/DAY, DROP
     Dates: start: 20200706, end: 20200713
  9. GENTAMICIN. [Concomitant]
     Active Substance: GENTAMICIN
     Dosage: 2?4 DROPS EACH EAR TDS FOR 1 WEEK
     Dates: start: 20200723
  10. AMITRIPTYLINE HYDROCHLORIDE. [Concomitant]
     Active Substance: AMITRIPTYLINE HYDROCHLORIDE
     Dosage: 1 DF, 1X/DAY, AT NIGHT.
     Dates: start: 20200722
  11. PROPRANOLOL [Concomitant]
     Active Substance: PROPRANOLOL HYDROCHLORIDE
     Dosage: 2 DF, 1X/DAY
     Dates: start: 20200511
  12. NAPROXEN. [Concomitant]
     Active Substance: NAPROXEN
     Dosage: 2 DF, 1X/DAY
     Dates: start: 20200713, end: 20200720
  13. MOMETASONE [Concomitant]
     Active Substance: MOMETASONE
     Dosage: 4 DF, 1X/DAY, EACH NOSTRIL.
     Dates: start: 20200728
  14. TOPIRAMATE. [Concomitant]
     Active Substance: TOPIRAMATE
     Dosage: 2 DF, 1X/DAY
     Dates: start: 20191209

REACTIONS (1)
  - Tongue blistering [Unknown]

NARRATIVE: CASE EVENT DATE: 20200608
